FAERS Safety Report 11783745 (Version 2)
Quarter: 2016Q2

REPORT INFORMATION
  Report Type: Spontaneous
  Country: IT (occurrence: IT)
  Receive Date: 20151127
  Receipt Date: 20160411
  Transmission Date: 20160815
  Serious: Yes (Hospitalization, Other)
  Sender: FDA-Public Use
  Company Number: IT-HOSPIRA-3087615

PATIENT
  Age: 71 Year
  Sex: Male
  Weight: 80 kg

DRUGS (10)
  1. OXALIPLATIN. [Suspect]
     Active Substance: OXALIPLATIN
     Indication: HETEROPLASIA
     Dates: start: 20151014
  2. FLUOROURACIL. [Concomitant]
     Active Substance: FLUOROURACIL
     Indication: HETEROPLASIA
     Dosage: EVERY 14 DAYS
     Route: 040
     Dates: start: 20160301
  3. FOLINIC ACID [Concomitant]
     Active Substance: LEUCOVORIN
     Indication: HETEROPLASIA
     Dates: start: 20151014
  4. FOLINIC ACID [Concomitant]
     Active Substance: LEUCOVORIN
     Indication: HETEROPLASIA
     Dosage: EVERY 14 DAYS
     Dates: start: 20160301
  5. OXALIPLATIN. [Suspect]
     Active Substance: OXALIPLATIN
     Indication: HETEROPLASIA
     Dosage: 85 MG/MQ OF THE BODY SURFACE; EVERY 14 DAYS
     Route: 042
     Dates: start: 20151111, end: 20151111
  6. FOLINIC ACID [Concomitant]
     Active Substance: LEUCOVORIN
     Indication: HETEROPLASIA
     Dosage: 200 MG/MQ; EVERY 14 DAYS
     Dates: start: 20151111
  7. FLUOROURACIL. [Concomitant]
     Active Substance: FLUOROURACIL
     Indication: HETEROPLASIA
     Dosage: EVERY 14 DAYS
     Dates: start: 20151111, end: 20151111
  8. FLUOROURACIL. [Concomitant]
     Active Substance: FLUOROURACIL
     Indication: HETEROPLASIA
     Route: 040
     Dates: start: 20151111, end: 20151111
  9. FLUOROURACIL. [Concomitant]
     Active Substance: FLUOROURACIL
     Indication: HETEROPLASIA
     Dates: start: 20151014
  10. FLUOROURACIL. [Concomitant]
     Active Substance: FLUOROURACIL
     Indication: HETEROPLASIA
     Dosage: CONTINUOUS INFUSION OF 48 HOURS; EVERY 14 DAYS
     Route: 041
     Dates: start: 20160301

REACTIONS (8)
  - Drug tolerance [Unknown]
  - Leukopenia [Unknown]
  - Hypersensitivity [Unknown]
  - Neutropenia [Unknown]
  - Syncope [Recovered/Resolved]
  - Generalised tonic-clonic seizure [Recovered/Resolved]
  - Loss of consciousness [Recovered/Resolved]
  - Cognitive disorder [Unknown]

NARRATIVE: CASE EVENT DATE: 20151111
